FAERS Safety Report 7555819-5 (Version None)
Quarter: 2011Q2

REPORT INFORMATION
  Report Type: 
  Country: None (occurrence: None)
  Receive Date: 20110618
  Receipt Date: 20091226
  Transmission Date: 20111010
  Serious: Yes (Other)
  Sender: FDA-Public Use
  Company Number: US-BAYER-200943358NA

PATIENT
  Age: 58 Year
  Sex: Male
  Weight: 120 kg

DRUGS (17)
  1. TRASYLOL [Suspect]
     Indication: AORTIC VALVE REPLACEMENT
     Dosage: INFUSION @ 50CC/HR IN ICU
     Dates: start: 20050829
  2. ALTACE [Concomitant]
     Dosage: 2.5 MG/ TWICE
     Route: 048
  3. PLAVIX [Concomitant]
     Dosage: 75 MG/DAILY
     Route: 048
  4. BENICAR [Concomitant]
     Dosage: 20 MG/DAILY
     Route: 048
  5. GLUCOVANCE [Concomitant]
     Route: 048
  6. LASIX [Concomitant]
     Dosage: 40 MG/DAILY
     Route: 048
  7. INSULIN [Concomitant]
     Dosage: UNK
     Route: 042
     Dates: start: 20050827
  8. RED BLOOD CELLS [Concomitant]
     Dosage: 4 UNITS
     Dates: start: 20050829
  9. NITROGLYCERIN [Concomitant]
     Dosage: .4 MG/ TWICE
     Route: 060
  10. AVANDIA [Concomitant]
     Dosage: 4 MG/ TWICE DAILY
     Route: 048
  11. VIOXX [Concomitant]
     Dosage: 25 MG AS NEEDED
     Route: 048
  12. HEPARIN [Concomitant]
     Dosage: UNK
     Route: 042
     Dates: start: 20050827
  13. LOPRESSOR [Concomitant]
     Dosage: 12.5 MG/TWICE DAILY
     Route: 048
  14. ZOCOR [Concomitant]
     Dosage: 80 MGS/DAILY
     Route: 048
  15. TRASYLOL [Suspect]
     Indication: CORONARY ARTERY BYPASS
     Dosage: 400ML BOLUS THEN 50ML/HOUR INFUSION
     Route: 042
     Dates: start: 20050829
  16. ACETYLSALICYLIC ACID SRT [Concomitant]
     Dosage: 81 MGS/DAILY
     Route: 048
  17. NITROGLYCERIN [Concomitant]
     Dosage: UNK
     Route: 042
     Dates: start: 20050824

REACTIONS (5)
  - UNEVALUABLE EVENT [None]
  - RENAL FAILURE ACUTE [None]
  - RENAL FAILURE [None]
  - INJURY [None]
  - PAIN [None]
